FAERS Safety Report 21842289 (Version 1)
Quarter: 2023Q1

REPORT INFORMATION
  Report Type: Report from Study
  Country: US (occurrence: US)
  Receive Date: 20230110
  Receipt Date: 20230110
  Transmission Date: 20230417
  Serious: No
  Sender: FDA-Public Use
  Company Number: US-ABBVIE-22K-163-4367902-00

PATIENT
  Age: 56 Year
  Sex: Male

DRUGS (3)
  1. SKYRIZI [Suspect]
     Active Substance: RISANKIZUMAB-RZAA
     Indication: Psoriasis
     Dosage: WEEK 0
     Route: 058
     Dates: start: 20220318, end: 20220318
  2. SKYRIZI [Suspect]
     Active Substance: RISANKIZUMAB-RZAA
     Indication: Psoriasis
     Dosage: THE ONSET OF  THE EVENT OF TENDED TO PLAQUE PSORIASIS BREAKOUT FEW DAYS PRIOR TO NEXT SKYRIZI INJ...
     Route: 058
     Dates: start: 20220708
  3. SKYRIZI [Suspect]
     Active Substance: RISANKIZUMAB-RZAA
     Dosage: WEEK 4, THEN EVERY 12 WEEKS
     Route: 058
     Dates: start: 20220415

REACTIONS (10)
  - Impaired healing [Recovered/Resolved]
  - Erythema [Recovered/Resolved]
  - Scratch [Recovered/Resolved]
  - Psoriasis [Unknown]
  - Therapeutic response shortened [Unknown]
  - Sensitive skin [Unknown]
  - Pain [Unknown]
  - Erythema [Unknown]
  - Pain [Unknown]
  - Pruritus [Unknown]

NARRATIVE: CASE EVENT DATE: 20220601
